FAERS Safety Report 24207146 (Version 2)
Quarter: 2024Q3

REPORT INFORMATION
  Report Type: Spontaneous
  Country: ES (occurrence: None)
  Receive Date: 20240813
  Receipt Date: 20240814
  Transmission Date: 20241017
  Serious: Yes (Other)
  Sender: UNICHEM
  Company Number: ES-Unichem Pharmaceuticals (USA) Inc-UCM202408-001000

PATIENT
  Age: 22 Week

DRUGS (1)
  1. VALSARTAN [Suspect]
     Active Substance: VALSARTAN
     Indication: Foetal exposure during pregnancy
     Dosage: UNKNOWN
     Route: 064

REACTIONS (2)
  - Nephropathy [Unknown]
  - Foetal exposure during pregnancy [Unknown]
